FAERS Safety Report 9133001 (Version 1)
Quarter: 2013Q1

REPORT INFORMATION
  Report Type: Spontaneous
  Country: US (occurrence: US)
  Receive Date: 20130116
  Receipt Date: 20130116
  Transmission Date: 20140127
  Serious: Yes (Other)
  Sender: FDA-Public Use
  Company Number: US-RB-048228-13

PATIENT
  Age: 30 Year
  Sex: Female

DRUGS (3)
  1. MUCINEX DM (GUAIFENESIN) [Suspect]
     Indication: DRUG ABUSE
     Dosage: PATIENT TAKING PRODUCT FOR ABOUT 8 YEARS.
     Route: 048
  2. MUCINEX DM (GUAIFENESIN) [Suspect]
     Indication: DRUG DEPENDENCE
     Dosage: PATIENT TAKING PRODUCT FOR ABOUT 8 YEARS.
     Route: 048
  3. MUCINEX DM (DEXTROMETHORPHAN HYDROBROMIDE) [Suspect]

REACTIONS (2)
  - Drug dependence [Not Recovered/Not Resolved]
  - Drug abuse [Not Recovered/Not Resolved]
